FAERS Safety Report 16889805 (Version 1)
Quarter: 2019Q4

REPORT INFORMATION
  Report Type: Spontaneous
  Country: US (occurrence: US)
  Receive Date: 20191007
  Receipt Date: 20191007
  Transmission Date: 20200122
  Serious: No
  Sender: FDA-Public Use
  Company Number: US-JNJFOC-20190933648

PATIENT
  Sex: Female

DRUGS (1)
  1. PEPCID AC [Suspect]
     Active Substance: FAMOTIDINE
     Indication: PRODUCT USED FOR UNKNOWN INDICATION
     Dosage: 4 TABLETS, 2 TABLETS IN THE MORNING AND 2 TABLETS AT NIGHT TWICE DAILY.
     Route: 048
     Dates: start: 20190921

REACTIONS (5)
  - Incorrect dose administered [Unknown]
  - Off label use [Unknown]
  - Insomnia [Unknown]
  - Alopecia [Unknown]
  - Fatigue [Unknown]

NARRATIVE: CASE EVENT DATE: 20190921
